FAERS Safety Report 9559300 (Version 1)
Quarter: 2013Q3

REPORT INFORMATION
  Report Type: Spontaneous
  Country: FR (occurrence: FR)
  Receive Date: 20130927
  Receipt Date: 20130927
  Transmission Date: 20140515
  Serious: Yes (Hospitalization)
  Sender: FDA-Public Use
  Company Number: PHHY2013FR107354

PATIENT
  Age: 82 Year
  Sex: Female

DRUGS (2)
  1. ACLASTA [Suspect]
     Dosage: UNK
     Route: 042
     Dates: start: 2008, end: 201012
  2. BISPHOSPHONATES [Concomitant]
     Indication: SPINAL COMPRESSION FRACTURE

REACTIONS (1)
  - Necrotising oesophagitis [Recovering/Resolving]
